FAERS Safety Report 11404161 (Version 1)
Quarter: 2015Q3

REPORT INFORMATION
  Report Type: Spontaneous
  Country: US (occurrence: US)
  Receive Date: 20150821
  Receipt Date: 20150821
  Transmission Date: 20151125
  Serious: No
  Sender: FDA-Public Use
  Company Number: US-SUN PHARMACEUTICAL INDUSTRIES LTD-2014SUN01859

PATIENT

DRUGS (3)
  1. BACTRIM [Suspect]
     Active Substance: SULFAMETHOXAZOLE\TRIMETHOPRIM
     Indication: INJECTION SITE INFECTION
     Dosage: UNK
     Route: 065
  2. WARFARIN [Concomitant]
     Active Substance: WARFARIN
  3. REMODULIN [Suspect]
     Active Substance: TREPROSTINIL
     Indication: ESSENTIAL HYPERTENSION
     Dosage: 0.072 ?G/KG/MIN
     Route: 042
     Dates: start: 20130912

REACTIONS (2)
  - Anaemia [Unknown]
  - Tremor [Unknown]

NARRATIVE: CASE EVENT DATE: 20140801
